FAERS Safety Report 4948381-4 (Version None)
Quarter: 2006Q1

REPORT INFORMATION
  Report Type: 
  Country: None (occurrence: None)
  Receive Date: 20060201
  Receipt Date: 20051026
  Transmission Date: 20060701
  Serious: No
  Sender: FDA-Public Use
  Company Number: 2005PV004198

PATIENT
  Sex: Male

DRUGS (3)
  1. BYETTA [Suspect]
     Indication: DIABETES MELLITUS
     Dosage: 10 MCG;BID;SC
     Route: 058
     Dates: start: 20050702
  2. PROVIGIL [Suspect]
     Dosage: 200 MG;BID
     Dates: start: 20021012
  3. PAXIL [Concomitant]

REACTIONS (5)
  - CIRCADIAN RHYTHM SLEEP DISORDER [None]
  - DECREASED APPETITE [None]
  - DRUG INTERACTION [None]
  - HYPERSOMNIA [None]
  - WEIGHT DECREASED [None]
